FAERS Safety Report 7085996-4 (Version None)
Quarter: 2010Q4

REPORT INFORMATION
  Report Type: 
  Country: None (occurrence: None)
  Receive Date: 20101027
  Receipt Date: 20101012
  Transmission Date: 20110411
  Serious: No
  Sender: FDA-Public Use
  Company Number: TPA2010A05344

PATIENT
  Age: 62 Year
  Sex: Male

DRUGS (3)
  1. ACTOS [Suspect]
     Dosage: 45 MG, 1 IN 1 D, PER ORAL
     Route: 048
     Dates: start: 20050217
  2. LIPITOR [Concomitant]
  3. TRAZODONE (TRAZODONE) [Concomitant]

REACTIONS (1)
  - BLADDER CANCER [None]
